FAERS Safety Report 8881144 (Version 1)
Quarter: 2012Q4

REPORT INFORMATION
  Report Type: 
  Country: FR (occurrence: FR)
  Receive Date: 20121031
  Receipt Date: 20121031
  Transmission Date: 20130627
  Serious: Yes (Hospitalization, Other)
  Sender: FDA-Public Use
  Company Number: FR-TEVA-367007ISR

PATIENT
  Age: 86 Year
  Sex: Male

DRUGS (7)
  1. ZOLPIDEM RATIOPHARM 10 MG [Suspect]
     Indication: SLEEP DISORDER
     Dosage: 5 Milligram Daily;
     Dates: end: 20121024
  2. LASILIX 40 MG [Concomitant]
     Dosage: 40 Milligram Daily;
  3. DIGOXINE [Concomitant]
     Dosage: 1 Dosage forms Daily;
  4. CASODEX 50 MG [Concomitant]
     Dosage: 50 Milligram Daily;
  5. PRADAXA 110 MG [Concomitant]
     Dosage: 220 Milligram Daily;
  6. IXPRIM [Concomitant]
     Indication: PAIN
     Dosage: 1 Dosage forms Daily;
  7. TAHOR 40 MG [Concomitant]
     Dosage: 40 Milligram Daily;

REACTIONS (2)
  - Transient ischaemic attack [Recovered/Resolved]
  - Sense of oppression [Recovered/Resolved]
